FAERS Safety Report 6968354-X (Version None)
Quarter: 2010Q3

REPORT INFORMATION
  Report Type: 
  Country: None (occurrence: None)
  Receive Date: 20100907
  Receipt Date: 20100826
  Transmission Date: 20110219
  Serious: Yes (Other)
  Sender: FDA-Public Use
  Company Number: US-SANOFI-AVENTIS-2010SA045588

PATIENT
  Sex: Female

DRUGS (11)
  1. MULTAQ [Suspect]
     Indication: ATRIAL FIBRILLATION
     Dosage: TOOK HALF A 400MG TABLET
     Route: 065
  2. MULTAQ [Suspect]
     Route: 065
     Dates: start: 20100801
  3. FISH OIL [Concomitant]
  4. COENZYME Q10 [Concomitant]
  5. SIBERIAN GINSENG [Concomitant]
  6. ECHINACEA SPP [Concomitant]
  7. CHLORHEXIDINE/FLUOR/GINGKO BILOBA/VITAMIN E [Concomitant]
  8. L-CARNITINE [Concomitant]
  9. HOPS [Concomitant]
  10. VALERIAN ROOT [Concomitant]
  11. ALL OTHER THERAPEUTIC PRODUCTS [Suspect]

REACTIONS (3)
  - ATRIAL FIBRILLATION [None]
  - FEELING ABNORMAL [None]
  - INCORRECT DOSE ADMINISTERED [None]
